FAERS Safety Report 6603330-8 (Version None)
Quarter: 2010Q1

REPORT INFORMATION
  Report Type: 
  Country: None (occurrence: None)
  Receive Date: 20100226
  Receipt Date: 20090126
  Transmission Date: 20100710
  Serious: No
  Sender: FDA-Public Use
  Company Number: A0765942A

PATIENT
  Sex: Male

DRUGS (1)
  1. VALTREX [Suspect]
     Indication: DRUG USE FOR UNKNOWN INDICATION
     Dosage: 1G PER DAY
     Route: 065
     Dates: start: 20070101

REACTIONS (2)
  - ILL-DEFINED DISORDER [None]
  - PAIN [None]
